FAERS Safety Report 4596086-4 (Version None)
Quarter: 2005Q1

REPORT INFORMATION
  Report Type: 
  Country: None (occurrence: None)
  Receive Date: 20050228
  Receipt Date: 20050228
  Transmission Date: 20050727
  Serious: No
  Sender: FDA-Public Use
  Company Number: None

PATIENT
  Age: 75 Year
  Sex: Male
  Weight: 83.9154 kg

DRUGS (1)
  1. CELEBREX [Suspect]
     Indication: ARTHRITIS
     Dosage: 1 PILL PER DAY
     Dates: start: 20001101, end: 20020301

REACTIONS (5)
  - ERYTHEMA [None]
  - FEELING ABNORMAL [None]
  - GOUT [None]
  - OEDEMA PERIPHERAL [None]
  - PRURITUS GENERALISED [None]
